FAERS Safety Report 21099488 (Version 1)
Quarter: 2022Q3

REPORT INFORMATION
  Report Type: Spontaneous
  Country: IT (occurrence: IT)
  Receive Date: 20220719
  Receipt Date: 20220719
  Transmission Date: 20221027
  Serious: Yes (Hospitalization, Other)
  Sender: FDA-Public Use
  Company Number: IT-DSJP-DSE-2022-124820

PATIENT
  Age: 81 Year
  Sex: Male

DRUGS (1)
  1. EDOXABAN [Suspect]
     Active Substance: EDOXABAN
     Indication: Anticoagulant therapy
     Dosage: 30 MG, QD (30MG/DAY)
     Route: 065

REACTIONS (6)
  - Hypoaesthesia [Recovered/Resolved]
  - Paraesthesia [Recovered/Resolved]
  - Paraesthesia [Recovered/Resolved]
  - Motor dysfunction [Recovered/Resolved]
  - Carotid artery stenosis [Recovered/Resolved]
  - SARS-CoV-2 test positive [Recovered/Resolved]
